FAERS Safety Report 4867922-9 (Version None)
Quarter: 2005Q4

REPORT INFORMATION
  Report Type: 
  Country: None (occurrence: None)
  Receive Date: 20051227
  Receipt Date: 20051214
  Transmission Date: 20060501
  Serious: Yes (Other)
  Sender: FDA-Public Use
  Company Number: DSA_27312_2005

PATIENT
  Age: 64 Year
  Sex: Female

DRUGS (15)
  1. BI-TILDIEM [Suspect]
     Indication: ANGINA PECTORIS
     Dosage: 180 MG Q DAY PO
     Route: 048
     Dates: start: 20040521, end: 20051006
  2. KETOPROFEN [Suspect]
     Indication: PAIN
     Dosage: DF TD
     Route: 062
     Dates: start: 20050418, end: 20050525
  3. COTAREG [Concomitant]
  4. KARDEGIC [Concomitant]
  5. CORVASAL [Concomitant]
  6. PLAVIX [Concomitant]
  7. TAHOR [Concomitant]
  8. RANIDINE [Concomitant]
  9. SKENAN [Concomitant]
  10. STILNOX [Concomitant]
  11. DOLIPRANE [Concomitant]
  12. FLEXOR [Concomitant]
  13. FORLAX [Concomitant]
  14. POLY-KARAYA [Concomitant]
  15. CELEBREX [Concomitant]

REACTIONS (5)
  - NERVOUSNESS [None]
  - OEDEMA PERIPHERAL [None]
  - PAIN [None]
  - SENSORY DISTURBANCE [None]
  - THERMAL BURN [None]
